FAERS Safety Report 20946940 (Version 1)
Quarter: 2022Q2

REPORT INFORMATION
  Report Type: Spontaneous
  Country: US (occurrence: None)
  Receive Date: 20220610
  Receipt Date: 20220610
  Transmission Date: 20220721
  Serious: Yes (Life-Threatening)
  Sender: FDA-Public Use
  Company Number: 2022A214539

PATIENT
  Age: 27504 Day
  Sex: Female

DRUGS (2)
  1. BUDESONIDE\FORMOTEROL\GLYCOPYRRONIUM [Suspect]
     Active Substance: BUDESONIDE\FORMOTEROL\GLYCOPYRRONIUM
     Dosage: TWO PUFFS TWICE A DAY
     Route: 055
     Dates: start: 20220604
  2. FASENRA [Suspect]
     Active Substance: BENRALIZUMAB
     Route: 058

REACTIONS (19)
  - Lung neoplasm malignant [Unknown]
  - Hyperhidrosis [Unknown]
  - Body temperature abnormal [Unknown]
  - Diarrhoea [Unknown]
  - Hangover [Unknown]
  - Metabolic disorder [Unknown]
  - Lung disorder [Unknown]
  - Dyspnoea [Unknown]
  - Feeling abnormal [Unknown]
  - Hiatus hernia [Unknown]
  - Condition aggravated [Unknown]
  - Drug hypersensitivity [Unknown]
  - Nausea [Unknown]
  - Dizziness [Unknown]
  - Cough [Unknown]
  - Therapeutic product effect increased [Unknown]
  - Drug ineffective [Unknown]
  - Device use issue [Unknown]
  - Intentional product misuse [Unknown]

NARRATIVE: CASE EVENT DATE: 20220606
